FAERS Safety Report 10185338 (Version 1)
Quarter: 2014Q2

REPORT INFORMATION
  Report Type: Spontaneous
  Country: DE (occurrence: DE)
  Receive Date: 20140521
  Receipt Date: 20140521
  Transmission Date: 20141212
  Serious: Yes (Hospitalization, Other)
  Sender: FDA-Public Use
  Company Number: DE-ACTAVIS-2014-09971

PATIENT
  Age: 49 Year
  Sex: Male

DRUGS (2)
  1. SILDENAFIL (UNKNOWN) [Suspect]
     Indication: DRUG ABUSE
     Dosage: 300 MG, UNKNOWN - ON THE DAY OF SYMPTOM ONSET
     Route: 065
  2. SILDENAFIL (UNKNOWN) [Suspect]
     Indication: SUBSTANCE USE

REACTIONS (3)
  - Vertebral artery dissection [Recovered/Resolved]
  - Cerebellar infarction [Unknown]
  - Drug abuse [Unknown]
